FAERS Safety Report 7783159-8 (Version None)
Quarter: 2011Q3

REPORT INFORMATION
  Report Type: 
  Country: None (occurrence: None)
  Receive Date: 20110928
  Receipt Date: 20110926
  Transmission Date: 20111222
  Serious: Yes (Life-Threatening, Other)
  Sender: FDA-Public Use
  Company Number: FR-BRISTOL-MYERS SQUIBB COMPANY-15650807

PATIENT
  Age: 66 Year
  Sex: Male

DRUGS (10)
  1. MEDIATOR [Suspect]
     Indication: DIABETES MELLITUS
     Dates: start: 20000101, end: 20090101
  2. PRAVASTATIN SODIUM [Suspect]
  3. PLAVIX [Suspect]
  4. DIFFU-K [Suspect]
  5. DIAMOX SRC [Suspect]
  6. SPIRIVA [Suspect]
  7. APROVEL TABS 150 MG [Suspect]
     Route: 048
  8. METFORMIN HYDROCHLORIDE [Suspect]
     Dosage: EUCREAS 50MG/1000MG
  9. BECLOMETHASONE DIPROPIONATE [Suspect]
     Route: 055
  10. FORADIL [Suspect]

REACTIONS (2)
  - DYSPNOEA EXERTIONAL [None]
  - PULMONARY ARTERIAL HYPERTENSION [None]
